FAERS Safety Report 6473718-7 (Version None)
Quarter: 2009Q4

REPORT INFORMATION
  Report Type: 
  Country: None (occurrence: None)
  Receive Date: 20091204
  Receipt Date: 20091130
  Transmission Date: 20100525
  Serious: Yes (Life-Threatening, Other)
  Sender: FDA-Public Use
  Company Number: CA-JNJFOC-20091108208

PATIENT
  Age: 37 Year
  Sex: Female
  Weight: 94 kg

DRUGS (6)
  1. INTELENCE [Suspect]
     Indication: HIV INFECTION
     Route: 048
     Dates: start: 20091015, end: 20091025
  2. TRUVADA [Concomitant]
     Indication: HIV INFECTION
     Route: 048
  3. METHADONE [Concomitant]
  4. METHADONE [Concomitant]
     Indication: DRUG USE FOR UNKNOWN INDICATION
  5. EFFEXOR [Concomitant]
     Indication: DRUG USE FOR UNKNOWN INDICATION
  6. CLONIDINE [Concomitant]
     Indication: DRUG USE FOR UNKNOWN INDICATION

REACTIONS (4)
  - DYSPNOEA [None]
  - RASH [None]
  - SWELLING FACE [None]
  - URTICARIA [None]
